FAERS Safety Report 10576279 (Version 1)
Quarter: 2014Q4

REPORT INFORMATION
  Report Type: Spontaneous
  Country: US (occurrence: US)
  Receive Date: 20141111
  Receipt Date: 20141111
  Transmission Date: 20150529
  Serious: Yes (Death)
  Sender: FDA-Public Use
  Company Number: US-CIPLA LTD.-2014US01681

PATIENT

DRUGS (8)
  1. VALPROIC ACID. [Suspect]
     Active Substance: VALPROIC ACID
     Indication: EPILEPSY
     Dosage: UNK
  2. TOPIRAMATE. [Suspect]
     Active Substance: TOPIRAMATE
     Indication: EPILEPSY
     Dosage: UNK
  3. RETIGABINE [Suspect]
     Active Substance: EZOGABINE
     Dosage: 100 MG, TID
     Route: 048
  4. RETIGABINE [Suspect]
     Active Substance: EZOGABINE
     Dosage: 200 MG, BID
     Route: 048
  5. CARBAMAZEPINE. [Suspect]
     Active Substance: CARBAMAZEPINE
     Indication: EPILEPSY
     Dosage: UNK
  6. PHENYTOIN. [Suspect]
     Active Substance: PHENYTOIN
     Indication: EPILEPSY
     Dosage: UNK
  7. RETIGABINE [Suspect]
     Active Substance: EZOGABINE
     Indication: EPILEPSY
     Dosage: 100 MG, BID
     Route: 048
  8. RETIGABINE [Suspect]
     Active Substance: EZOGABINE
     Dosage: 200 MG, TID
     Route: 048

REACTIONS (1)
  - Metastatic neoplasm [Fatal]
